FAERS Safety Report 15964758 (Version 2)
Quarter: 2019Q1

REPORT INFORMATION
  Report Type: Spontaneous
  Country: CN (occurrence: CN)
  Receive Date: 20190215
  Receipt Date: 20190215
  Transmission Date: 20190418
  Serious: Yes (Other)
  Sender: FDA-Public Use
  Company Number: CN-CIPLA LTD.-2019CN00872

PATIENT

DRUGS (2)
  1. LAMIVUDINE. [Suspect]
     Active Substance: LAMIVUDINE
     Indication: HEPATIC CIRRHOSIS
     Dosage: 100 MILLIGRAM, QD
     Route: 048
  2. LAMIVUDINE. [Suspect]
     Active Substance: LAMIVUDINE
     Indication: CHRONIC HEPATITIS B
     Dosage: 100 MILLIGRAM, PER DAY, FOR 48 WEEKS
     Route: 065

REACTIONS (1)
  - Drug resistance [Unknown]
